FAERS Safety Report 8223460-7 (Version None)
Quarter: 2012Q1

REPORT INFORMATION
  Report Type: 
  Country: None (occurrence: None)
  Receive Date: 20120321
  Receipt Date: 20120312
  Transmission Date: 20120608
  Serious: Yes (Hospitalization)
  Sender: FDA-Public Use
  Company Number: CN-SANOFI-AVENTIS-2012SA016171

PATIENT
  Age: 81 Year
  Sex: Male
  Weight: 67 kg

DRUGS (3)
  1. ATENOLOL AND CHLORTHALIDONE [Suspect]
     Indication: ANTIPLATELET THERAPY
     Route: 048
     Dates: start: 20111218
  2. ASPIRIN [Concomitant]
     Indication: ANTIPLATELET THERAPY
     Route: 048
     Dates: start: 20111218
  3. METOPROLOL TARTRATE [Concomitant]
     Indication: ANTIPLATELET THERAPY
     Route: 048
     Dates: start: 20111218

REACTIONS (2)
  - DYSPNOEA [None]
  - ACUTE MYOCARDIAL INFARCTION [None]
